FAERS Safety Report 8152413-2 (Version None)
Quarter: 2012Q1

REPORT INFORMATION
  Report Type: 
  Country: None (occurrence: None)
  Receive Date: 20120221
  Receipt Date: 20120206
  Transmission Date: 20120608
  Serious: Yes (Other)
  Sender: FDA-Public Use
  Company Number: US-SANOFI-AVENTIS-2012SA004602

PATIENT
  Age: 65 Year
  Sex: Male

DRUGS (3)
  1. GLIMEPIRIDE [Suspect]
     Route: 048
     Dates: start: 20090803
  2. PIOGLITAZONE [Suspect]
     Route: 048
     Dates: start: 20090916
  3. METFORMIN HCL [Suspect]
     Route: 048

REACTIONS (1)
  - BLADDER CANCER [None]
